FAERS Safety Report 8544557-8 (Version None)
Quarter: 2012Q3

REPORT INFORMATION
  Report Type: 
  Country: None (occurrence: None)
  Receive Date: 20120727
  Receipt Date: 20100628
  Transmission Date: 20120928
  Serious: Yes (Death, Other)
  Sender: FDA-Public Use
  Company Number: CO-PFIZER INC-2012179590

PATIENT
  Age: 80 Year
  Sex: Female

DRUGS (7)
  1. LIPITOR [Suspect]
     Indication: DYSLIPIDAEMIA
     Dosage: 30 MG, 1X/DAY
  2. OLMESARTAN MEDOXOMIL AND HYDROCHLOROTHIZIDE [Suspect]
     Indication: HYPERTENSION
     Dosage: OLMESARTAN/HYDROCHLOROTHIAZIDE 20/12.5 MG,1X/DAY
  3. METOPROLOL TARTRATE [Concomitant]
     Dosage: 30 MG, 1X/DAY
  4. METFORMIN [Concomitant]
     Dosage: 30 MG, 1X/DAY
  5. SPIRONOLACTONE [Concomitant]
     Dosage: 15 MG, 1X/DAY
  6. GLIBENCLAMIDE [Concomitant]
     Dosage: 30 MG, 1X/DAY
  7. AMLODIPINE [Concomitant]
     Dosage: 60 MG, 2X/DAY

REACTIONS (4)
  - SUDDEN CARDIAC DEATH [None]
  - PROTEINURIA [None]
  - HYPERTENSIVE EMERGENCY [None]
  - LEUKOCYTURIA [None]
